FAERS Safety Report 24568639 (Version 1)
Quarter: 2024Q4

REPORT INFORMATION
  Report Type: Spontaneous
  Country: US (occurrence: US)
  Receive Date: 20241031
  Receipt Date: 20241031
  Transmission Date: 20250115
  Serious: No
  Sender: ALEXION PHARMACEUTICALS
  Company Number: US-ASTRAZENECA-202410USA025308US

PATIENT
  Age: 27 Year
  Weight: 90 kg

DRUGS (6)
  1. VOYDEYA [Suspect]
     Active Substance: DANICOPAN
     Indication: Paroxysmal nocturnal haemoglobinuria
     Dosage: 150 MILLIGRAM, TID
  2. VOYDEYA [Suspect]
     Active Substance: DANICOPAN
     Dosage: 200 MILLIGRAM, TID
  3. ACYCLOVIR [Concomitant]
     Active Substance: ACYCLOVIR
     Indication: Paroxysmal nocturnal haemoglobinuria
     Dosage: 1 TABLET 400 MILLIGRAM, BID
  4. FOLIC ACID [Concomitant]
     Active Substance: FOLIC ACID
     Indication: Paroxysmal nocturnal haemoglobinuria
     Dosage: 1 MILLIGRAM, QD
  5. EPINEPHRINE [Concomitant]
     Active Substance: EPINEPHRINE
     Indication: Hypersensitivity
     Dosage: 0.3 MILLIGRAM, PRN
  6. VITAMIN B12 [Concomitant]
     Active Substance: CYANOCOBALAMIN
     Indication: Paroxysmal nocturnal haemoglobinuria
     Dosage: 1000 MICROGRAM, QD

REACTIONS (3)
  - Anaemia [Not Recovered/Not Resolved]
  - Haematuria [Unknown]
  - Jaundice [Unknown]
